FAERS Safety Report 4508688-1 (Version None)
Quarter: 2004Q4

REPORT INFORMATION
  Report Type: 
  Country: None (occurrence: None)
  Receive Date: 20041123
  Receipt Date: 20040603
  Transmission Date: 20050328
  Serious: Yes (Other)
  Sender: FDA-Public Use
  Company Number: US-GLAXOSMITHKLINE-A0513294A

PATIENT
  Age: 24 Year
  Sex: Female

DRUGS (2)
  1. WELLBUTRIN [Suspect]
     Indication: DEPRESSION
     Dosage: 150MG TWICE PER DAY
     Route: 048
     Dates: start: 20030501
  2. NO CONCURRENT MEDICATION [Concomitant]

REACTIONS (4)
  - HALLUCINATION [None]
  - PARANOIA [None]
  - UNEXPECTED THERAPEUTIC DRUG EFFECT [None]
  - WEIGHT DECREASED [None]
